FAERS Safety Report 4810942-0 (Version None)
Quarter: 2005Q4

REPORT INFORMATION
  Report Type: 
  Country: None (occurrence: None)
  Receive Date: 20051027
  Receipt Date: 20050802
  Transmission Date: 20060501
  Serious: Yes (Hospitalization, Disabling)
  Sender: FDA-Public Use
  Company Number: 2005UW11440

PATIENT
  Age: 70 Year
  Sex: Female
  Weight: 66.4 kg

DRUGS (6)
  1. CRESTOR [Suspect]
     Indication: HYPERLIPIDAEMIA
     Route: 048
     Dates: start: 20040916, end: 20041020
  2. CRESTOR [Suspect]
     Indication: BLOOD CHOLESTEROL INCREASED
     Route: 048
     Dates: start: 20040916, end: 20041020
  3. SYNTHROID [Concomitant]
     Route: 048
  4. TOPROL-XL [Concomitant]
     Route: 048
  5. NORVASC [Concomitant]
     Route: 048
  6. LISINOPRIL AND HYDROCHLOROTHIAZIDE [Concomitant]
     Dosage: 20/12.5 MG
     Route: 048

REACTIONS (5)
  - ARTHRALGIA [None]
  - COLON OPERATION [None]
  - GASTROINTESTINAL HAEMORRHAGE [None]
  - MYALGIA [None]
  - POLYMYALGIA RHEUMATICA [None]
